FAERS Safety Report 19610307 (Version 1)
Quarter: 2021Q3

REPORT INFORMATION
  Report Type: Spontaneous
  Country: CN (occurrence: CN)
  Receive Date: 20210726
  Receipt Date: 20210726
  Transmission Date: 20211014
  Serious: Yes (Death, Other)
  Sender: FDA-Public Use
  Company Number: CN-ASTRAZENECA-2021A630579

PATIENT
  Age: 54 Year
  Sex: Male

DRUGS (16)
  1. TAGRISSO [Suspect]
     Active Substance: OSIMERTINIB
     Indication: METASTASES TO LYMPH NODES
     Route: 048
     Dates: start: 201607, end: 201610
  2. OSIMERTINIB. [Suspect]
     Active Substance: OSIMERTINIB
     Indication: METASTASES TO LYMPH NODES
     Route: 048
     Dates: start: 201610, end: 201710
  3. GEFITINIB. [Suspect]
     Active Substance: GEFITINIB
     Indication: METASTASES TO BONE
     Route: 048
     Dates: start: 201507, end: 201607
  4. CRIZOTINIB [Concomitant]
     Active Substance: CRIZOTINIB
     Indication: METASTASES TO BONE
     Route: 065
     Dates: start: 201704, end: 201710
  5. OSIMERTINIB. [Suspect]
     Active Substance: OSIMERTINIB
     Indication: LUNG ADENOCARCINOMA STAGE II
     Route: 048
     Dates: start: 201610, end: 201710
  6. OSIMERTINIB. [Suspect]
     Active Substance: OSIMERTINIB
     Indication: METASTASES TO BONE
     Route: 048
     Dates: start: 201610, end: 201710
  7. OSIMERTINIB. [Suspect]
     Active Substance: OSIMERTINIB
     Indication: METASTASES TO BONE
     Route: 048
     Dates: start: 201610, end: 201710
  8. CRIZOTINIB [Concomitant]
     Active Substance: CRIZOTINIB
     Indication: METASTASES TO BONE
     Route: 065
     Dates: start: 201704, end: 201710
  9. GEFITINIB. [Suspect]
     Active Substance: GEFITINIB
     Indication: METASTASES TO LYMPH NODES
     Route: 048
     Dates: start: 201507, end: 201607
  10. TAGRISSO [Suspect]
     Active Substance: OSIMERTINIB
     Indication: METASTASES TO BONE
     Route: 048
     Dates: start: 201607, end: 201610
  11. TAGRISSO [Suspect]
     Active Substance: OSIMERTINIB
     Indication: LUNG ADENOCARCINOMA STAGE II
     Route: 048
     Dates: start: 201607, end: 201610
  12. TAGRISSO [Suspect]
     Active Substance: OSIMERTINIB
     Indication: METASTASES TO BONE
     Route: 048
     Dates: start: 201607, end: 201610
  13. GEFITINIB. [Suspect]
     Active Substance: GEFITINIB
     Indication: METASTASES TO BONE
     Route: 048
     Dates: start: 201507, end: 201607
  14. CRIZOTINIB [Concomitant]
     Active Substance: CRIZOTINIB
     Indication: LUNG ADENOCARCINOMA STAGE II
     Route: 065
     Dates: start: 201704, end: 201710
  15. CRIZOTINIB [Concomitant]
     Active Substance: CRIZOTINIB
     Indication: METASTASES TO LYMPH NODES
     Route: 065
     Dates: start: 201704, end: 201710
  16. GEFITINIB. [Suspect]
     Active Substance: GEFITINIB
     Indication: LUNG ADENOCARCINOMA STAGE II
     Route: 048
     Dates: start: 201507, end: 201607

REACTIONS (3)
  - Malignant neoplasm progression [Fatal]
  - Drug resistance [Unknown]
  - Acquired gene mutation [Unknown]
